FAERS Safety Report 9537112 (Version 1)
Quarter: 2013Q3

REPORT INFORMATION
  Report Type: Spontaneous
  Country: DE (occurrence: DE)
  Receive Date: 20130919
  Receipt Date: 20130919
  Transmission Date: 20140515
  Serious: Yes (Life-Threatening, Other)
  Sender: FDA-Public Use
  Company Number: DE-BAYER-2013-108972

PATIENT
  Age: 50 Year
  Sex: Male

DRUGS (1)
  1. AVALOX [Suspect]

REACTIONS (2)
  - Choking [None]
  - Head discomfort [None]
